FAERS Safety Report 24725444 (Version 3)
Quarter: 2025Q1

REPORT INFORMATION
  Report Type: Spontaneous
  Country: US (occurrence: US)
  Receive Date: 20241212
  Receipt Date: 20250108
  Transmission Date: 20250408
  Serious: Yes (Hospitalization, Disabling, Other)
  Sender: BRISTOL-MYERS SQUIBB COMPANY
  Company Number: US-BRISTOL-MYERS SQUIBB COMPANY-2024-189159

PATIENT
  Age: 77 Year
  Sex: Male
  Weight: 66.22 kg

DRUGS (6)
  1. THALOMID [Suspect]
     Active Substance: THALIDOMIDE
     Indication: Myelofibrosis
     Dosage: ONCE DAILY,
     Route: 048
  2. THALOMID [Suspect]
     Active Substance: THALIDOMIDE
     Dates: start: 202411
  3. TRAZODONE [Concomitant]
     Active Substance: TRAZODONE HYDROCHLORIDE
     Indication: Neuralgia
  4. OMEPRAZOLE [Concomitant]
     Active Substance: OMEPRAZOLE
     Indication: Gastrooesophageal reflux disease
  5. PREDNISONE [Concomitant]
     Active Substance: PREDNISONE
     Indication: Gout
  6. CRESEMBA [Concomitant]
     Active Substance: ISAVUCONAZONIUM SULFATE
     Indication: Pneumonia fungal

REACTIONS (3)
  - Pneumonia [Not Recovered/Not Resolved]
  - Off label use [Unknown]
  - Neuropathy peripheral [Recovered/Resolved]

NARRATIVE: CASE EVENT DATE: 20241126
